FAERS Safety Report 15082392 (Version 1)
Quarter: 2018Q2

REPORT INFORMATION
  Report Type: Spontaneous
  Country: US (occurrence: US)
  Receive Date: 20180607
  Receipt Date: 20180607
  Transmission Date: 20180711
  Serious: Yes (Hospitalization, Disabling)
  Sender: FDA-Public Use
  Company Number: None

PATIENT
  Age: 23 Year
  Sex: Male
  Weight: 58.5 kg

DRUGS (2)
  1. LEVOFLOXACIN. [Suspect]
     Active Substance: LEVOFLOXACIN
     Indication: EPIDIDYMITIS
     Route: 042
  2. CIPROFLOXACIN. [Suspect]
     Active Substance: CIPROFLOXACIN
     Indication: EPIDIDYMITIS
     Dosage: ?          QUANTITY:5 DF DOSAGE FORM;?
     Route: 048

REACTIONS (13)
  - Anxiety [None]
  - Inflammation [None]
  - Myalgia [None]
  - Memory impairment [None]
  - Arthralgia [None]
  - Tachycardia [None]
  - Panic attack [None]
  - Depressed level of consciousness [None]
  - Tendon pain [None]
  - Vision blurred [None]
  - Insomnia [None]
  - Depression [None]
  - Gait inability [None]

NARRATIVE: CASE EVENT DATE: 20180329
